FAERS Safety Report 8296694-3 (Version None)
Quarter: 2012Q2

REPORT INFORMATION
  Report Type: 
  Country: None (occurrence: None)
  Receive Date: 20120418
  Receipt Date: 20120321
  Transmission Date: 20120825
  Serious: Yes (Death)
  Sender: FDA-Public Use
  Company Number: JP-BAXTER-2012BAX000123

PATIENT
  Sex: Female

DRUGS (3)
  1. DIANEAL-N PD-4 1.5 PD SOLUTION [Suspect]
     Route: 033
     Dates: start: 20080501, end: 20120319
  2. DIANEAL 137 W/ DEXTROSE 2.5% IN PLASTIC CONTAINER [Suspect]
     Route: 033
     Dates: start: 20080501, end: 20120319
  3. EXTRANEAL [Suspect]
     Route: 033
     Dates: start: 20080501, end: 20120319

REACTIONS (1)
  - CARDIAC FAILURE [None]
